FAERS Safety Report 5945826-8 (Version None)
Quarter: 2008Q4

REPORT INFORMATION
  Report Type: 
  Country: None (occurrence: None)
  Receive Date: 20081105
  Receipt Date: 20081027
  Transmission Date: 20090506
  Serious: Yes (Hospitalization, Other)
  Sender: FDA-Public Use
  Company Number: WAES 0809CAN00067

PATIENT
  Age: 67 Year
  Sex: Male

DRUGS (3)
  1. JANUVIA [Suspect]
     Indication: TYPE 2 DIABETES MELLITUS
     Dosage: 100 MG/AM
     Route: 048
     Dates: start: 20080512, end: 20080920
  2. METFORMIN HCL [Concomitant]
  3. METFORMIN HCL [Concomitant]

REACTIONS (2)
  - INGUINAL HERNIA, OBSTRUCTIVE [None]
  - URINE ODOUR ABNORMAL [None]
